FAERS Safety Report 9923923 (Version 2)
Quarter: 2014Q2

REPORT INFORMATION
  Report Type: Report from Study
  Country: DE (occurrence: DE)
  Receive Date: 20140225
  Receipt Date: 20140409
  Transmission Date: 20141212
  Serious: Yes (Death, Hospitalization, Other)
  Sender: FDA-Public Use
  Company Number: DE-GILEAD-2014-0094910

PATIENT
  Age: 30 Year
  Sex: Female
  Weight: 68 kg

DRUGS (131)
  1. CIDOFOVIR [Suspect]
     Indication: CYTOMEGALOVIRUS INFECTION
     Dosage: 350 MG, QD
     Route: 065
     Dates: start: 20140116, end: 20140116
  2. INOTUZUMAB OZOGAMICIN [Suspect]
     Indication: ACUTE LYMPHOCYTIC LEUKAEMIA
     Dosage: 0.87 MG, Q1WK
     Route: 042
     Dates: start: 20130924, end: 20131104
  3. URSOFALK [Concomitant]
     Dosage: UNK
     Dates: start: 20131212, end: 20131219
  4. TOREM                              /01036501/ [Concomitant]
     Dosage: UNK
     Dates: start: 20140116, end: 20140117
  5. TOREM                              /01036501/ [Concomitant]
     Dosage: UNK
     Dates: start: 20130117, end: 20140123
  6. RIVOTRIL [Concomitant]
     Dosage: UNK
     Dates: end: 20131212
  7. REMERGIL [Concomitant]
     Dosage: UNK
     Dates: start: 20131215, end: 20131216
  8. REMERGIL [Concomitant]
     Dosage: UNK
     Dates: start: 20131218, end: 20131219
  9. PROBENECID [Concomitant]
     Dosage: UNK
     Dates: start: 20140116, end: 20140116
  10. PANTOZOL                           /01263204/ [Concomitant]
     Dosage: UNK
     Dates: start: 20131212, end: 20131219
  11. PANTOZOL                           /01263204/ [Concomitant]
     Dosage: UNK
     Dates: start: 20131219, end: 20131223
  12. PANTOZOL                           /01263204/ [Concomitant]
     Dosage: UNK
     Dates: start: 20131223, end: 20140104
  13. PANTOZOL                           /01263204/ [Concomitant]
     Dosage: UNK
     Dates: start: 20140104, end: 20140114
  14. PANTOZOL                           /01263204/ [Concomitant]
     Dosage: UNK
     Dates: start: 20140114, end: 20140115
  15. PANTOZOL                           /01263204/ [Concomitant]
     Dosage: UNK
     Dates: start: 20140115
  16. PALLADON [Concomitant]
     Dosage: UNK
     Dates: start: 20131215, end: 20131220
  17. MULTIVITAMINS [Concomitant]
     Dosage: UNK
     Dates: start: 20140104
  18. MAGNESIUM [Concomitant]
     Dosage: UNK
     Dates: start: 20131223
  19. MAGNESIUM [Concomitant]
     Dosage: UNK
     Dates: start: 20140104, end: 20140109
  20. MAGNESIUM [Concomitant]
     Dosage: UNK
     Dates: start: 20140109
  21. LASIX                              /00032601/ [Concomitant]
     Dosage: UNK
     Dates: start: 20131214, end: 20131214
  22. LASIX                              /00032601/ [Concomitant]
     Dosage: UNK
     Dates: start: 20131216, end: 20131218
  23. LASIX                              /00032601/ [Concomitant]
     Dosage: UNK
     Dates: start: 20131220, end: 20131220
  24. LASIX                              /00032601/ [Concomitant]
     Dosage: UNK
     Dates: start: 20131224, end: 20131226
  25. LASIX                              /00032601/ [Concomitant]
     Dosage: UNK
     Dates: start: 20131226, end: 20131228
  26. LASIX                              /00032601/ [Concomitant]
     Dosage: UNK
     Dates: start: 20131229, end: 20131230
  27. LASIX                              /00032601/ [Concomitant]
     Dosage: UNK
     Dates: start: 20131230, end: 20131231
  28. LASIX                              /00032601/ [Concomitant]
     Dosage: UNK
     Dates: start: 20131231, end: 20140104
  29. LASIX                              /00032601/ [Concomitant]
     Dosage: UNK
     Dates: start: 20140105, end: 20140107
  30. LASIX                              /00032601/ [Concomitant]
     Dosage: UNK
     Dates: start: 20140109, end: 20140110
  31. KALINOR                            /00031402/ [Concomitant]
     Dosage: UNK
     Dates: start: 20140104, end: 20140106
  32. KALINOR                            /00031402/ [Concomitant]
     Dosage: UNK
     Dates: start: 20140117, end: 20140121
  33. KALINOR                            /00031402/ [Concomitant]
     Dosage: UNK
     Dates: start: 20140124
  34. HYDROCHLOROTHIAZID [Concomitant]
     Dosage: UNK
     Dates: start: 20140117, end: 20140121
  35. BIFITERAL [Concomitant]
     Dosage: UNK
     Dates: start: 20131230, end: 20140107
  36. ARCOXIA [Concomitant]
     Dosage: UNK
     Dates: start: 20140109, end: 20140109
  37. ARCOXIA [Concomitant]
     Dosage: UNK
     Dates: start: 20140114, end: 20140121
  38. ALLOPURINOL [Concomitant]
     Dosage: UNK
     Dates: start: 20131212, end: 20131219
  39. VFEND [Concomitant]
     Dosage: UNK
     Dates: start: 20131219, end: 20131219
  40. COTRIM FORTE [Concomitant]
     Dosage: UNK
     Dates: start: 20140119, end: 20140120
  41. CIPROFLOXACIN HCL [Concomitant]
     Dosage: UNK
     Dates: start: 20131212, end: 20131219
  42. CIPROFLOXACIN HCL [Concomitant]
     Dosage: UNK
     Dates: start: 20131219, end: 20131225
  43. ACICLOVIR [Concomitant]
     Dosage: UNK
     Dates: start: 20131212, end: 20131219
  44. ACICLOVIR [Concomitant]
     Dosage: UNK
     Dates: start: 20131219, end: 20131220
  45. ACICLOVIR [Concomitant]
     Dosage: UNK
     Dates: start: 20131220, end: 20140107
  46. ACICLOVIR [Concomitant]
     Dosage: UNK
     Dates: start: 20140107, end: 20140108
  47. MYCOPHENOLATE MOFETIL [Concomitant]
     Dosage: UNK
     Dates: start: 20131221, end: 20131222
  48. MYCOPHENOLATE MOFETIL [Concomitant]
     Dosage: UNK
     Dates: start: 20131222, end: 20140104
  49. LAXOBERAL [Concomitant]
     Dosage: UNK
     Dates: start: 20131229, end: 20131229
  50. LAXOBERAL [Concomitant]
     Dosage: UNK
     Dates: start: 20131231, end: 20140107
  51. FRESUBIN [Concomitant]
     Dosage: UNK
     Dates: start: 20131223, end: 20140105
  52. FRESUBIN [Concomitant]
     Dosage: UNK
     Dates: start: 20140122
  53. CYCLOSPORIN A [Concomitant]
     Dosage: UNK
     Dates: start: 20131219, end: 20131219
  54. CYCLOSPORIN A [Concomitant]
     Dosage: UNK
     Dates: start: 20131220, end: 20131223
  55. CYCLOSPORIN A [Concomitant]
     Dosage: UNK
     Dates: start: 20131223, end: 20131224
  56. CYCLOSPORIN A [Concomitant]
     Dosage: UNK
     Dates: start: 20131224, end: 20131225
  57. CYCLOSPORIN A [Concomitant]
     Dosage: UNK
     Dates: start: 20131225, end: 20131228
  58. CYCLOSPORIN A [Concomitant]
     Dosage: UNK
     Dates: start: 20131228, end: 20140101
  59. CYCLOSPORIN A [Concomitant]
     Dosage: UNK
     Dates: start: 20140101, end: 20140103
  60. CYCLOSPORIN A [Concomitant]
     Dosage: UNK
     Dates: start: 20140103, end: 20140103
  61. CYCLOSPORIN A [Concomitant]
     Dosage: UNK
     Dates: start: 20140104, end: 20140105
  62. CYCLOSPORIN A [Concomitant]
     Dosage: UNK
     Dates: start: 20140105, end: 20140110
  63. CYCLOSPORIN A [Concomitant]
     Dosage: UNK
     Dates: start: 20140110, end: 20140116
  64. CYCLOSPORIN A [Concomitant]
     Dosage: UNK
     Dates: start: 20140116, end: 20140117
  65. CYCLOSPORIN A [Concomitant]
     Dosage: UNK
     Dates: start: 20140117, end: 20140121
  66. CYCLOSPORIN A [Concomitant]
     Dosage: UNK
     Dates: start: 20140121, end: 20140124
  67. CYCLOSPORIN A [Concomitant]
     Dosage: UNK
     Dates: start: 20140124
  68. POSACONAZOLE [Concomitant]
     Dosage: UNK
     Dates: start: 20140117
  69. AMPHO-MORONAL [Concomitant]
     Dosage: UNK
     Dates: start: 20131212, end: 20140109
  70. ZOFRAN                             /00955301/ [Concomitant]
     Dosage: UNK
     Dates: start: 20131212, end: 20131220
  71. TAVEGIL                            /00137201/ [Concomitant]
     Dosage: UNK
     Dates: start: 20131216, end: 20131216
  72. TAVEGIL                            /00137201/ [Concomitant]
     Dosage: UNK
     Dates: start: 20131220, end: 20131220
  73. STEROFUNDIN [Concomitant]
     Dosage: UNK
     Dates: start: 20131212, end: 20131214
  74. STEROFUNDIN [Concomitant]
     Dosage: UNK
     Dates: start: 20131214, end: 20131219
  75. STEROFUNDIN [Concomitant]
     Dosage: UNK
     Dates: start: 20131219, end: 20131220
  76. STEROFUNDIN [Concomitant]
     Dosage: UNK
     Dates: start: 20131220, end: 20131221
  77. STEROFUNDIN [Concomitant]
     Dosage: UNK
     Dates: start: 20140108, end: 20140109
  78. STEROFUNDIN [Concomitant]
     Dosage: UNK
     Dates: start: 20140120, end: 20140121
  79. STEROFUNDIN [Concomitant]
     Dosage: UNK
     Dates: start: 20140121, end: 20140122
  80. STEROFUNDIN [Concomitant]
     Dosage: UNK
     Dates: start: 20140122, end: 20140125
  81. STEROFUNDIN [Concomitant]
     Dosage: UNK
     Dates: start: 20140125, end: 20140126
  82. STEROFUNDIN [Concomitant]
     Dosage: UNK
     Dates: start: 20140126
  83. SOLU-DECORTIN-H [Concomitant]
     Dosage: UNK
     Dates: start: 20131216, end: 20131218
  84. SOLU-DECORTIN-H [Concomitant]
     Dosage: UNK
     Dates: start: 20131220, end: 20131220
  85. REFOBACIN [Concomitant]
     Dosage: UNK
     Dates: start: 20131225, end: 20140104
  86. PIPERACILLIN/TAZOBACTAM [Concomitant]
     Dosage: UNK
     Dates: start: 20131225, end: 20140108
  87. SODIUM CHLORIDE [Concomitant]
     Dosage: UNK
     Dates: start: 20140113, end: 20140116
  88. SODIUM CHLORIDE [Concomitant]
     Dosage: UNK
     Dates: start: 20140116, end: 20140116
  89. MESNA [Concomitant]
     Dosage: UNK
     Dates: start: 20131217, end: 20131219
  90. MCP                                /00041901/ [Concomitant]
     Dosage: UNK
     Dates: start: 20131220, end: 20131220
  91. MCP                                /00041901/ [Concomitant]
     Dosage: UNK
     Dates: start: 20140101, end: 20140101
  92. MCP                                /00041901/ [Concomitant]
     Dosage: UNK
     Dates: start: 20131219, end: 20131223
  93. KEVATRIL [Concomitant]
     Dosage: UNK
     Dates: start: 20140116, end: 20140116
  94. IMMUNOGLOBULINS [Concomitant]
     Dosage: UNK
     Dates: start: 20131212, end: 20131212
  95. FORTECORTIN                        /00016001/ [Concomitant]
     Dosage: UNK
     Dates: start: 20131219, end: 20131220
  96. FLUDARABINE [Concomitant]
     Dosage: UNK
     Dates: start: 20131212, end: 20131216
  97. DEXAMETHASONE [Concomitant]
     Dosage: UNK
     Dates: start: 20131212, end: 20131215
  98. CYCLOPHOSPHAMID [Concomitant]
     Dosage: UNK
     Dates: start: 20131217, end: 20131218
  99. BUSULFAN [Concomitant]
     Dosage: UNK
     Dates: start: 20131214, end: 20131217
  100. MICAFUNGIN [Concomitant]
     Dosage: UNK
     Dates: start: 20131219, end: 20140107
  101. MICAFUNGIN [Concomitant]
     Dosage: UNK
     Dates: start: 20140107, end: 20140117
  102. FOSCAVIR [Concomitant]
     Dosage: UNK
     Dates: start: 20140106, end: 20140108
  103. FOSCAVIR [Concomitant]
     Dosage: UNK
     Dates: start: 20140108, end: 20140109
  104. FOSCAVIR [Concomitant]
     Dosage: UNK
     Dates: start: 20140110, end: 20140111
  105. FOSCAVIR [Concomitant]
     Dosage: UNK
     Dates: start: 20140111, end: 20140116
  106. CYMEVENE                           /00784201/ [Concomitant]
     Dosage: UNK
     Dates: start: 20140126
  107. RELISTOR [Concomitant]
     Dosage: UNK
     Dates: start: 20140101, end: 20140101
  108. PENTACARINAT [Concomitant]
     Dosage: UNK
     Dates: start: 20131212, end: 20131212
  109. OVESTIN [Concomitant]
     Dosage: UNK
     Dates: start: 20131228
  110. NIKOFRENON [Concomitant]
     Dosage: UNK
     Dates: start: 20131213, end: 20131223
  111. ADVANTAN [Concomitant]
     Dosage: UNK
     Dates: start: 20140125
  112. PALLADON [Concomitant]
     Dosage: UNK
     Dates: start: 20131215, end: 20131220
  113. PALLADON [Concomitant]
     Dosage: UNK
     Dates: start: 20131223, end: 20131226
  114. SODIUM BICARBONATE [Concomitant]
     Dosage: UNK
     Dates: start: 20131218, end: 20131223
  115. BROMAZEPAM [Concomitant]
     Dosage: UNK
     Dates: start: 20131216, end: 20131219
  116. BROMAZEPAM [Concomitant]
     Dosage: UNK
     Dates: start: 20131220, end: 20131220
  117. BROMAZEPAM [Concomitant]
     Dosage: UNK
     Dates: start: 20131223
  118. VOMEX A [Concomitant]
     Dosage: UNK
     Dates: start: 20131218
  119. PERFALGAN [Concomitant]
     Dosage: UNK
     Dates: start: 20131228, end: 20131228
  120. PARACETAMOL-RATIOPHARM [Concomitant]
     Dosage: UNK
     Dates: start: 20131225, end: 20131226
  121. PALLADON [Concomitant]
     Dosage: UNK
     Route: 040
     Dates: start: 20131226, end: 20140108
  122. NOVAMINSULFON-RATIOPHARM [Concomitant]
     Dosage: UNK
     Dates: start: 20131225, end: 20131226
  123. XYLOCAIN                           /00033402/ [Concomitant]
     Dosage: UNK
     Dates: start: 20140122
  124. CYKLOKAPRON [Concomitant]
     Dosage: UNK
     Dates: start: 20131216, end: 20131219
  125. CYKLOKAPRON [Concomitant]
     Dosage: UNK
     Dates: start: 20131226, end: 20131228
  126. CYKLOKAPRON [Concomitant]
     Dosage: UNK
     Dates: start: 20131228, end: 20140105
  127. TPE [Concomitant]
     Dosage: UNK
     Dates: start: 20131224, end: 20140107
  128. POTASSIUM [Concomitant]
     Dosage: UNK
     Dates: start: 20131216
  129. CLONAZEPAM [Concomitant]
     Dosage: UNK
     Dates: start: 20131212, end: 20131212
  130. CLONAZEPAM [Concomitant]
     Dosage: UNK
     Dates: start: 20131213, end: 20131219
  131. ATG-FRESENIUS [Concomitant]
     Dosage: UNK
     Dates: start: 20131216, end: 20131218

REACTIONS (1)
  - Venoocclusive liver disease [Fatal]
